FAERS Safety Report 7419746-6 (Version None)
Quarter: 2011Q2

REPORT INFORMATION
  Report Type: 
  Country: None (occurrence: None)
  Receive Date: 20110412
  Receipt Date: 20110412
  Transmission Date: 20111010
  Serious: Yes (Disabling, Other)
  Sender: FDA-Public Use
  Company Number: None

PATIENT
  Age: 61 Year
  Sex: Male
  Weight: 124 kg

DRUGS (2)
  1. CIPROFLOXACIN [Suspect]
     Indication: CYSTOSCOPY
     Dosage: 1 TABLET EVERY 12 HOURS PO
     Route: 048
     Dates: start: 20110315, end: 20110318
  2. CIPROFLOXACIN [Suspect]
     Indication: PROPHYLAXIS
     Dosage: 1 TABLET EVERY 12 HOURS PO
     Route: 048
     Dates: start: 20110315, end: 20110318

REACTIONS (7)
  - TINNITUS [None]
  - FOREIGN BODY SENSATION IN EYES [None]
  - EYE PRURITUS [None]
  - INITIAL INSOMNIA [None]
  - OTOTOXICITY [None]
  - DRY MOUTH [None]
  - DRY EYE [None]
